FAERS Safety Report 11908565 (Version 1)
Quarter: 2016Q1

REPORT INFORMATION
  Report Type: Other
  Country: GB (occurrence: GB)
  Receive Date: 20160111
  Receipt Date: 20160111
  Transmission Date: 20160526
  Serious: Yes (Other)
  Sender: FDA-Public Use
  Company Number: GB-MYLANLABS-2016M1000564

PATIENT

DRUGS (2)
  1. GILENYA [Suspect]
     Active Substance: FINGOLIMOD HYDROCHLORIDE
     Indication: PRODUCT USED FOR UNKNOWN INDICATION
     Dosage: UNK
     Route: 065
     Dates: start: 201301
  2. CARBAMAZEPINE. [Suspect]
     Active Substance: CARBAMAZEPINE
     Indication: AKINESIA
     Dosage: 200 MG, QD
     Route: 048
     Dates: start: 201503, end: 20150626

REACTIONS (7)
  - Behcet^s syndrome [Unknown]
  - Oral pain [Recovering/Resolving]
  - Mouth ulceration [Recovered/Resolved with Sequelae]
  - Feeding disorder [Recovering/Resolving]
  - Genital rash [Recovered/Resolved with Sequelae]
  - Genital ulceration [Recovered/Resolved with Sequelae]
  - Oral mucosal eruption [Recovered/Resolved with Sequelae]

NARRATIVE: CASE EVENT DATE: 201503
